FAERS Safety Report 21499202 (Version 1)
Quarter: 2022Q4

REPORT INFORMATION
  Report Type: Spontaneous
  Country: US (occurrence: None)
  Receive Date: 20221023
  Receipt Date: 20221023
  Transmission Date: 20230113
  Serious: Yes (Life-Threatening, Hospitalization)
  Sender: FDA-Public Use
  Company Number: None

PATIENT
  Age: 79 Year
  Sex: Male
  Weight: 88.2 kg

DRUGS (4)
  1. LIDOCAINE [Suspect]
     Active Substance: LIDOCAINE
     Indication: Neck pain
     Dosage: OTHER QUANTITY : 30 PATCH(ES);?FREQUENCY : 3 TIMES A DAY;?
     Route: 061
     Dates: start: 20220930, end: 20221014
  2. ATENOLOL [Concomitant]
     Active Substance: ATENOLOL
  3. HYDROCHLOROTHIAZIDE [Concomitant]
     Active Substance: HYDROCHLOROTHIAZIDE
  4. SPIRONOLACTONE [Concomitant]
     Active Substance: SPIRONOLACTONE

REACTIONS (3)
  - Product substitution issue [None]
  - Atrial fibrillation [None]
  - Product physical consistency issue [None]

NARRATIVE: CASE EVENT DATE: 20221014
